FAERS Safety Report 7524640-6 (Version None)
Quarter: 2011Q2

REPORT INFORMATION
  Report Type: 
  Country: None (occurrence: None)
  Receive Date: 20110606
  Receipt Date: 20110525
  Transmission Date: 20111010
  Serious: Yes (Hospitalization)
  Sender: FDA-Public Use
  Company Number: US-JNJFOC-20110511439

PATIENT
  Sex: Male
  Weight: 74.75 kg

DRUGS (17)
  1. LIBRAX [Concomitant]
     Indication: GASTROINTESTINAL DISORDER
     Route: 048
     Dates: start: 19950101
  2. ADVAIR DISKUS 100/50 [Concomitant]
     Route: 055
     Dates: start: 20100101
  3. JALYN [Concomitant]
     Indication: PROSTATIC DISORDER
     Dates: start: 20100101
  4. PRIMIDONE [Concomitant]
     Indication: TREMOR
     Route: 048
     Dates: start: 20060101
  5. GLIPIZIDE [Concomitant]
     Indication: DIABETES MELLITUS
     Route: 048
     Dates: start: 19950101
  6. METHOTREXATE [Concomitant]
     Indication: ARTHRITIS
  7. CRESTOR [Concomitant]
     Indication: BLOOD CHOLESTEROL INCREASED
     Route: 048
     Dates: start: 20060101
  8. EVISTA [Concomitant]
     Route: 048
     Dates: start: 20100101
  9. TRAVATAN [Concomitant]
     Indication: GLAUCOMA
     Route: 047
     Dates: start: 20010101
  10. PRIMIDONE [Concomitant]
     Dates: start: 20060101
  11. FOLIC ACID [Concomitant]
     Indication: VITAMIN SUPPLEMENTATION
  12. BONIVA [Concomitant]
     Indication: BONE DISORDER
  13. CELEBREX [Concomitant]
     Indication: ARTHRITIS
     Route: 048
     Dates: start: 20100101
  14. FUROSEMIDE [Concomitant]
     Indication: FLUID RETENTION
     Route: 048
     Dates: start: 20100101
  15. SIMPONI [Suspect]
     Indication: RHEUMATOID ARTHRITIS
     Route: 058
     Dates: start: 20110101
  16. DEXILANT [Concomitant]
     Indication: GASTROOESOPHAGEAL REFLUX DISEASE
     Route: 048
  17. GABAPENTIN [Concomitant]
     Indication: MUSCLE TWITCHING
     Route: 048
     Dates: start: 20090101

REACTIONS (4)
  - INFLUENZA [None]
  - DEVICE MALFUNCTION [None]
  - ATRIAL FIBRILLATION [None]
  - DRUG DOSE OMISSION [None]
